FAERS Safety Report 8447312-2 (Version None)
Quarter: 2012Q2

REPORT INFORMATION
  Report Type: 
  Country: None (occurrence: None)
  Receive Date: 20120619
  Receipt Date: 20120613
  Transmission Date: 20120825
  Serious: Yes (Other)
  Sender: FDA-Public Use
  Company Number: PHHY2012ZA045651

PATIENT
  Sex: Male

DRUGS (1)
  1. IMATINIB MESYLATE [Suspect]
     Indication: GASTROINTESTINAL STROMAL TUMOUR
     Dosage: 400 MG, UNK
     Route: 048

REACTIONS (6)
  - DIARRHOEA [None]
  - DEHYDRATION [None]
  - NAUSEA [None]
  - DRUG INTOLERANCE [None]
  - MASTOIDITIS [None]
  - VOMITING [None]
